FAERS Safety Report 6911119-5 (Version None)
Quarter: 2010Q3

REPORT INFORMATION
  Report Type: 
  Country: None (occurrence: None)
  Receive Date: 20100806
  Receipt Date: 20100716
  Transmission Date: 20110219
  Serious: Yes (Hospitalization, Other)
  Sender: FDA-Public Use
  Company Number: JP-MERCK-1007USA00975

PATIENT
  Age: 9 Year
  Sex: Male

DRUGS (2)
  1. PEPCID [Suspect]
     Indication: GASTROINTESTINAL HAEMORRHAGE
     Route: 048
  2. PHENOBARBITAL [Concomitant]
     Route: 048

REACTIONS (3)
  - ANAEMIA MEGALOBLASTIC [None]
  - GASTROINTESTINAL HAEMORRHAGE [None]
  - LOWER RESPIRATORY TRACT INFLAMMATION [None]
